FAERS Safety Report 11159153 (Version 1)
Quarter: 2015Q2

REPORT INFORMATION
  Report Type: Spontaneous
  Country: US (occurrence: US)
  Receive Date: 20150603
  Receipt Date: 20150603
  Transmission Date: 20150821
  Serious: Yes (Disabling)
  Sender: FDA-Public Use
  Company Number: US-HOSPIRA-2884180

PATIENT
  Age: 40 Year
  Sex: Male

DRUGS (6)
  1. KETOROLAC [Concomitant]
     Active Substance: KETOROLAC\KETOROLAC TROMETHAMINE
     Indication: SURGERY
     Dosage: NOT REPORTED
     Dates: start: 20140102
  2. BUPIVACAINE HYDROCHLORIDE. [Suspect]
     Active Substance: BUPIVACAINE HYDROCHLORIDE
     Indication: SURGERY
     Dosage: NOT REPORTED
     Dates: start: 20140102
  3. FENTANYL. [Concomitant]
     Active Substance: FENTANYL
     Indication: SURGERY
     Dosage: NOT REPORTED
     Dates: start: 20140102
  4. LIDOCAINE. [Concomitant]
     Active Substance: LIDOCAINE
     Indication: SURGERY
     Dosage: NOT REPORTED
     Dates: start: 20140102
  5. SEVOFLURANE. [Concomitant]
     Active Substance: SEVOFLURANE
     Indication: SURGERY
     Dosage: NOT REPORTED
     Dates: start: 20140102
  6. PROPOFOL. [Concomitant]
     Active Substance: PROPOFOL
     Indication: SURGERY
     Dosage: NOT REPORTED
     Dates: start: 20140102

REACTIONS (4)
  - Peroneal nerve palsy [Not Recovered/Not Resolved]
  - Blood aluminium increased [Unknown]
  - Muscle rigidity [Not Recovered/Not Resolved]
  - Balance disorder [Not Recovered/Not Resolved]

NARRATIVE: CASE EVENT DATE: 20140102
